FAERS Safety Report 21342253 (Version 3)
Quarter: 2023Q2

REPORT INFORMATION
  Report Type: Other
  Country: US (occurrence: None)
  Receive Date: 20220916
  Receipt Date: 20230623
  Transmission Date: 20230722
  Serious: Yes (Other)
  Sender: FDA-Public Use
  Company Number: US-ROCHE-3178361

PATIENT
  Age: 79 Year
  Sex: Female

DRUGS (2)
  1. ACTEMRA [Suspect]
     Active Substance: TOCILIZUMAB
     Indication: Giant cell arteritis
     Route: 058
  2. ACTEMRA [Suspect]
     Active Substance: TOCILIZUMAB

REACTIONS (10)
  - Memory impairment [Unknown]
  - Cerebrovascular accident [Unknown]
  - Swelling face [Unknown]
  - Overweight [Unknown]
  - Back disorder [Unknown]
  - Erythema [Unknown]
  - Immunodeficiency [Unknown]
  - Mood swings [Unknown]
  - Emotional disorder [Unknown]
  - Dizziness [Unknown]
